FAERS Safety Report 10200317 (Version 3)
Quarter: 2014Q2

REPORT INFORMATION
  Report Type: Spontaneous
  Country: BR (occurrence: BR)
  Receive Date: 20140527
  Receipt Date: 20140620
  Transmission Date: 20141212
  Serious: Yes (Other)
  Sender: FDA-Public Use
  Company Number: PHHY2014BR064834

PATIENT
  Age: 71 Year
  Sex: Female

DRUGS (3)
  1. DIOVAN AMLO FIX [Suspect]
     Indication: HYPERTENSION
     Dosage: 1 TABLET (160/5 MG), DAILY
     Route: 048
     Dates: start: 201401
  2. DIOVAN AMLO FIX [Suspect]
     Dosage: 1 TABLET (160/5 MG), DAILY
     Route: 048
  3. DIOVAN AMLO FIX [Suspect]
     Dosage: 1 TABLET (160/5 MG), DAILY
     Route: 048
     Dates: start: 20140522

REACTIONS (2)
  - Blood pressure increased [Recovered/Resolved]
  - Blood pressure inadequately controlled [Recovered/Resolved]
